FAERS Safety Report 8115351-7 (Version None)
Quarter: 2012Q1

REPORT INFORMATION
  Report Type: 
  Country: None (occurrence: None)
  Receive Date: 20120206
  Receipt Date: 20120206
  Transmission Date: 20120608
  Serious: Yes (Hospitalization)
  Sender: FDA-Public Use
  Company Number: None

PATIENT
  Age: 69 Year
  Weight: 79.378 kg

DRUGS (1)
  1. METHYLPREDNISOLONE [Suspect]
     Indication: ARTHRITIS
     Dosage: INJECTION
     Route: 023
     Dates: start: 20120114, end: 20120114

REACTIONS (14)
  - VISION BLURRED [None]
  - DIZZINESS [None]
  - DYSPNOEA [None]
  - CONTUSION [None]
  - BACK PAIN [None]
  - BLOOD PRESSURE INCREASED [None]
  - BLOOD PRESSURE DECREASED [None]
  - PULMONARY CONGESTION [None]
  - MUSCLE SPASMS [None]
  - HEADACHE [None]
  - CHEST PAIN [None]
  - PAIN IN EXTREMITY [None]
  - HYPERHIDROSIS [None]
  - BODY TEMPERATURE INCREASED [None]
